FAERS Safety Report 17451541 (Version 3)
Quarter: 2021Q2

REPORT INFORMATION
  Report Type: Spontaneous
  Country: US (occurrence: US)
  Receive Date: 20200224
  Receipt Date: 20210412
  Transmission Date: 20210716
  Serious: No
  Sender: FDA-Public Use
  Company Number: US-PFIZER INC-2020080050

PATIENT
  Age: 74 Year
  Sex: Male

DRUGS (2)
  1. LEVOTHYROXINE. [Concomitant]
     Active Substance: LEVOTHYROXINE
     Dosage: 150 UG, ONCE DAILY
     Route: 048
     Dates: start: 20200127
  2. XELJANZ [Suspect]
     Active Substance: TOFACITINIB CITRATE
     Indication: RHEUMATOID ARTHRITIS
     Dosage: 5 MG, 2X/DAY
     Dates: start: 20200127

REACTIONS (2)
  - Drug hypersensitivity [Unknown]
  - Hypoacusis [Not Recovered/Not Resolved]
